FAERS Safety Report 23125580 (Version 3)
Quarter: 2024Q1

REPORT INFORMATION
  Report Type: Spontaneous
  Country: US (occurrence: US)
  Receive Date: 20231030
  Receipt Date: 20240314
  Transmission Date: 20240410
  Serious: No
  Sender: FDA-Public Use
  Company Number: US-SA-SAC20231025000053

PATIENT
  Age: 66 Year
  Sex: Female

DRUGS (4)
  1. DUPIXENT [Suspect]
     Active Substance: DUPILUMAB
     Indication: Neurodermatitis
     Dosage: 300 MG, QOW
     Route: 058
     Dates: start: 20230814, end: 2023
  2. DUPIXENT [Suspect]
     Active Substance: DUPILUMAB
     Indication: Psoriasis
  3. DUPIXENT [Suspect]
     Active Substance: DUPILUMAB
     Indication: Psoriatic arthropathy
  4. ENBREL [Concomitant]
     Active Substance: ETANERCEPT
     Route: 065

REACTIONS (15)
  - Hot flush [Unknown]
  - Acrochordon [Unknown]
  - Lymphadenopathy [Unknown]
  - Palpitations [Unknown]
  - Malaise [Unknown]
  - Dyspnoea [Unknown]
  - Asthma [Unknown]
  - Skin mass [Unknown]
  - Nodule [Unknown]
  - Paraesthesia [Unknown]
  - Vision blurred [Unknown]
  - Dizziness [Unknown]
  - Pruritus [Recovering/Resolving]
  - Rash [Unknown]
  - Product use in unapproved indication [Unknown]

NARRATIVE: CASE EVENT DATE: 20230101
